FAERS Safety Report 6614812-7 (Version None)
Quarter: 2010Q1

REPORT INFORMATION
  Report Type: 
  Country: None (occurrence: None)
  Receive Date: 20100305
  Receipt Date: 20100225
  Transmission Date: 20100710
  Serious: Yes (Other)
  Sender: FDA-Public Use
  Company Number: US-SP-2010-01273

PATIENT
  Sex: Female

DRUGS (1)
  1. TUBERSOL [Suspect]
     Indication: TUBERCULIN TEST
     Route: 023
     Dates: start: 20100215, end: 20100215

REACTIONS (8)
  - APPLICATION SITE HAEMATOMA [None]
  - COORDINATION ABNORMAL [None]
  - EYELID DISORDER [None]
  - FEELING ABNORMAL [None]
  - LIMB DISCOMFORT [None]
  - PARAESTHESIA [None]
  - RASH [None]
  - WHEEZING [None]
